FAERS Safety Report 11248215 (Version 1)
Quarter: 2015Q2

REPORT INFORMATION
  Report Type: Report from Study
  Country: US (occurrence: None)
  Receive Date: 20150617
  Receipt Date: 20150617
  Transmission Date: 20150821
  Serious: No
  Sender: FDA-Public Use
  Company Number: 2014TASUS000521

PATIENT
  Age: 47 Year
  Sex: Female
  Weight: 106.6 kg

DRUGS (3)
  1. HETLIOZ [Suspect]
     Active Substance: TASIMELTEON
     Indication: CIRCADIAN RHYTHM SLEEP DISORDER
     Route: 048
     Dates: start: 201408, end: 20140921
  2. VITAMINS [Concomitant]
     Active Substance: VITAMINS
  3. DULCOLAX (BISACODYL) TABLET [Concomitant]

REACTIONS (3)
  - Abdominal pain [None]
  - Drug dose omission [None]
  - Abdominal pain upper [None]

NARRATIVE: CASE EVENT DATE: 20140921
